FAERS Safety Report 5571927-2 (Version None)
Quarter: 2007Q4

REPORT INFORMATION
  Report Type: 
  Country: None (occurrence: None)
  Receive Date: 20071221
  Receipt Date: 20071220
  Transmission Date: 20080405
  Serious: Yes (Hospitalization)
  Sender: FDA-Public Use
  Company Number: GB-RANBAXY-2007RR-12042

PATIENT

DRUGS (4)
  1. ATENOLOL TABLETS BP 100MG [Suspect]
     Dosage: 2000 MG, UNK
     Route: 065
  2. AMLODIPINE BASICS 10MG TABLETS [Suspect]
     Dosage: 325 MG, UNK
     Route: 065
  3. LOSARTAN POTASSIUM [Suspect]
     Dosage: 2000 MG, UNK
     Route: 048
  4. ZOPICLONE RPG 7.5MG COMPRIME PELLICULE SECABLE [Suspect]
     Dosage: 37.5 MG, UNK
     Route: 065

REACTIONS (4)
  - ATRIOVENTRICULAR BLOCK FIRST DEGREE [None]
  - DRUG TOXICITY [None]
  - HYPOTENSION [None]
  - OVERDOSE [None]
